FAERS Safety Report 4353809-7 (Version None)
Quarter: 2004Q2

REPORT INFORMATION
  Report Type: 
  Country: None (occurrence: None)
  Receive Date: 20040505
  Receipt Date: 20040505
  Transmission Date: 20050107
  Serious: Yes (Death)
  Sender: FDA-Public Use
  Company Number: None

PATIENT
  Age: 77 Year
  Sex: Male

DRUGS (1)
  1. DOCETAXEL [Suspect]

REACTIONS (2)
  - BLOOD PRESSURE DECREASED [None]
  - TREATMENT NONCOMPLIANCE [None]
